FAERS Safety Report 18555993 (Version 1)
Quarter: 2020Q4

REPORT INFORMATION
  Report Type: Spontaneous
  Country: US (occurrence: US)
  Receive Date: 20201127
  Receipt Date: 20201127
  Transmission Date: 20210114
  Serious: No
  Sender: FDA-Public Use
  Company Number: US-PERRIGO-20US003303

PATIENT
  Age: 52 Year
  Sex: Female
  Weight: 68.03 kg

DRUGS (1)
  1. NICOTINE POLACRILEX [Suspect]
     Active Substance: NICOTINE
     Indication: SMOKING CESSATION THERAPY
     Dosage: 4 MG, SINGLE
     Route: 002
     Dates: start: 20200223, end: 20200223

REACTIONS (3)
  - Dyspepsia [Recovered/Resolved]
  - Hiccups [Recovered/Resolved]
  - Nausea [Recovered/Resolved]

NARRATIVE: CASE EVENT DATE: 20200223
